FAERS Safety Report 14817194 (Version 1)
Quarter: 2018Q2

REPORT INFORMATION
  Report Type: Spontaneous
  Country: JP (occurrence: JP)
  Receive Date: 20180426
  Receipt Date: 20180426
  Transmission Date: 20180711
  Serious: Yes (Other)
  Sender: FDA-Public Use
  Company Number: JP-OTSUKA-2018_010479

PATIENT

DRUGS (1)
  1. SAMSCA [Suspect]
     Active Substance: TOLVAPTAN
     Indication: CONGENITAL CYSTIC KIDNEY DISEASE
     Dosage: 45MG/DAY
     Route: 048

REACTIONS (3)
  - Polyuria [Unknown]
  - Subarachnoid haemorrhage [Unknown]
  - Blood sodium increased [Unknown]
